FAERS Safety Report 22302778 (Version 1)
Quarter: 2023Q2

REPORT INFORMATION
  Report Type: Spontaneous
  Country: MX (occurrence: MX)
  Receive Date: 20230510
  Receipt Date: 20230510
  Transmission Date: 20230722
  Serious: Yes (Other)
  Sender: FDA-Public Use
  Company Number: MX-002147023-NVSC2023MX105626

PATIENT
  Sex: Male

DRUGS (1)
  1. GLIVEC [Suspect]
     Active Substance: IMATINIB MESYLATE
     Indication: Chronic myeloid leukaemia
     Dosage: 600 MG (6X 100 MG)
     Route: 065

REACTIONS (9)
  - Seizure [Unknown]
  - Loss of consciousness [Unknown]
  - Accident [Unknown]
  - Fall [Unknown]
  - Confusional state [Unknown]
  - Limb injury [Unknown]
  - Pain [Unknown]
  - Rib fracture [Unknown]
  - Headache [Unknown]
